FAERS Safety Report 8973064 (Version 1)
Quarter: 2012Q4

REPORT INFORMATION
  Report Type: 
  Country: US (occurrence: US)
  Receive Date: 20121218
  Receipt Date: 20121218
  Transmission Date: 20130627
  Serious: No
  Sender: FDA-Public Use
  Company Number: US-BRISTOL-MYERS SQUIBB COMPANY-16980930

PATIENT
  Age: 63 Year
  Sex: Female

DRUGS (5)
  1. ABILIFY [Suspect]
     Indication: MAJOR DEPRESSION
  2. WELLBUTRIN [Concomitant]
  3. CRESTOR [Concomitant]
  4. LOSARTAN [Concomitant]
  5. NOVOLOG [Concomitant]
     Indication: MAJOR DEPRESSION

REACTIONS (5)
  - Blood glucose increased [Unknown]
  - Insomnia [Unknown]
  - Restlessness [Unknown]
  - Tremor [Unknown]
  - Muscular weakness [Unknown]
